FAERS Safety Report 4853141-9 (Version None)
Quarter: 2005Q4

REPORT INFORMATION
  Report Type: 
  Country: None (occurrence: None)
  Receive Date: 20051212
  Receipt Date: 20051130
  Transmission Date: 20060501
  Serious: Yes (Other)
  Sender: FDA-Public Use
  Company Number: 2005PV003500

PATIENT
  Age: 66 Year
  Sex: Female
  Weight: 85.2762 kg

DRUGS (4)
  1. BYETTA [Suspect]
     Indication: DIABETES MELLITUS NON-INSULIN-DEPENDENT
     Dosage: 5 MCG; BID; SC
     Route: 058
     Dates: start: 20050101, end: 20050101
  2. PRANDIN [Concomitant]
  3. LANTUS [Concomitant]
  4. SYNTHROID [Concomitant]

REACTIONS (4)
  - ABASIA [None]
  - DIPLEGIA [None]
  - NAUSEA [None]
  - SPEECH DISORDER [None]
